FAERS Safety Report 26196553 (Version 1)
Quarter: 2025Q4

REPORT INFORMATION
  Report Type: Other
  Country: EU (occurrence: EU)
  Receive Date: 20251224
  Receipt Date: 20251224
  Transmission Date: 20260117
  Serious: Yes (Hospitalization)
  Sender: XGEN PHARMACEUTICALS DJB, INC.
  Company Number: EU-XGen Pharmaceuticals DJB, Inc.-2190820

PATIENT
  Age: 75 Year
  Sex: Female

DRUGS (1)
  1. DEHYDRATED ALCOHOL [Suspect]
     Active Substance: ALCOHOL

REACTIONS (3)
  - Cardiac tamponade [Recovered/Resolved]
  - Hypoperfusion [Recovered/Resolved]
  - Obstructive shock [Recovered/Resolved]
